FAERS Safety Report 15325528 (Version 1)
Quarter: 2018Q3

REPORT INFORMATION
  Report Type: Spontaneous
  Country: US (occurrence: US)
  Receive Date: 20180828
  Receipt Date: 20180828
  Transmission Date: 20181010
  Serious: Yes (Other)
  Sender: FDA-Public Use
  Company Number: US-PFIZER INC-2018345076

PATIENT
  Age: 76 Year
  Sex: Female

DRUGS (1)
  1. VFEND [Suspect]
     Active Substance: VORICONAZOLE
     Dosage: 200 MG, 2X/DAY (EVERY 12 HOURS)

REACTIONS (9)
  - Increased viscosity of bronchial secretion [Unknown]
  - Cachexia [Unknown]
  - Breath sounds abnormal [Unknown]
  - Productive cough [Unknown]
  - Sputum retention [Unknown]
  - Wheezing [Unknown]
  - Haemoptysis [Unknown]
  - Cough [Unknown]
  - Dyspnoea exertional [Unknown]
